FAERS Safety Report 13369017 (Version 2)
Quarter: 2017Q1

REPORT INFORMATION
  Report Type: Spontaneous
  Country: JP (occurrence: JP)
  Receive Date: 20170324
  Receipt Date: 20170329
  Transmission Date: 20170429
  Serious: No
  Sender: FDA-Public Use
  Company Number: JP-PFIZER INC-2017126253

PATIENT
  Age: 73 Year
  Sex: Male

DRUGS (6)
  1. AMIX [Suspect]
     Active Substance: AMOXICILLIN
     Indication: HYPERTENSION
     Dosage: UNK
     Route: 048
  2. AIMIX [Concomitant]
     Active Substance: AMLODIPINE BESYLATE\IRBESARTAN
  3. TRAZENTA [Suspect]
     Active Substance: LINAGLIPTIN
     Indication: DIABETES MELLITUS
     Dosage: UNK
     Route: 048
  4. LYRICA [Suspect]
     Active Substance: PREGABALIN
     Indication: NEURALGIA
     Dosage: 25 MG, 2X/DAY
     Route: 048
     Dates: start: 20160112
  5. CALONAL [Suspect]
     Active Substance: ACETAMINOPHEN
     Indication: NEURALGIA
     Dosage: UNK
     Route: 048
  6. OPALMON [Suspect]
     Active Substance: LIMAPROST
     Indication: NEURALGIA
     Dosage: UNK
     Route: 048

REACTIONS (2)
  - Sensory loss [Unknown]
  - Hypoaesthesia [Unknown]

NARRATIVE: CASE EVENT DATE: 20170322
